FAERS Safety Report 8460288 (Version 2)
Quarter: 2012Q4

REPORT INFORMATION
  Report Type: Report from Study
  Country: JP (occurrence: JP)
  Receive Date: 20120315
  Receipt Date: 20120919
  Transmission Date: 20130627
  Serious: Yes (Hospitalization)
  Sender: FDA-Public Use
  Company Number: PHHO2011JP17005

PATIENT
  Age: 72 Year
  Sex: Male
  Weight: 59 kg

DRUGS (5)
  1. INDACATEROL MALEATE [Suspect]
     Indication: CHRONIC OBSTRUCTIVE PULMONARY DISEASE
     Dosage: 150 ug, QD
     Dates: start: 20110728, end: 20111002
  2. INDACATEROL [Suspect]
     Dosage: 150 ug, QD
     Dates: start: 20111102, end: 20120124
  3. NORVASC [Concomitant]
     Indication: HYPERTENSION
     Dosage: 2.5 mg, UNK
     Route: 048
     Dates: start: 20100629
  4. ZYLORIC [Concomitant]
     Indication: HYPERURICAEMIA
     Dosage: 100 mg, UNK
     Route: 048
     Dates: start: 20100827
  5. IRBESARTAN [Concomitant]

REACTIONS (2)
  - Subarachnoid haemorrhage [Recovered/Resolved]
  - Lumbar vertebral fracture [Recovering/Resolving]
